FAERS Safety Report 26219114 (Version 1)
Quarter: 2025Q4

REPORT INFORMATION
  Report Type: Spontaneous
  Country: EU (occurrence: EU)
  Receive Date: 20251231
  Receipt Date: 20251231
  Transmission Date: 20260117
  Serious: Yes (Death, Other)
  Sender: AMGEN
  Company Number: EU-AMGEN-NLDSP2025255538

PATIENT

DRUGS (7)
  1. CARFILZOMIB [Suspect]
     Active Substance: CARFILZOMIB
     Indication: Plasma cell myeloma
     Dosage: 20 MILLIGRAM/SQ. METER - ON DAY 1 OF THE FIRST CYCLE
     Route: 040
  2. CARFILZOMIB [Suspect]
     Active Substance: CARFILZOMIB
     Dosage: 36 MILLIGRAM/SQ. METER - ON DAYS 1, 2, 8, 9, 15, AND 16 IN CYCLES 1-2
     Route: 040
  3. CARFILZOMIB [Suspect]
     Active Substance: CARFILZOMIB
     Dosage: 56 MILLIGRAM/SQ. METER - IN CYCLES 3-18
     Route: 040
  4. LENALIDOMIDE [Suspect]
     Active Substance: LENALIDOMIDE
     Indication: Plasma cell myeloma
     Dosage: UNK
     Route: 065
  5. DEXAMETHASONE [Suspect]
     Active Substance: DEXAMETHASONE
     Indication: Plasma cell myeloma
     Dosage: UNK
     Route: 065
  6. DARATUMUMAB [Suspect]
     Active Substance: DARATUMUMAB
     Indication: Plasma cell myeloma
     Dosage: 16 MILLIGRAM/KILOGRAM, QWK - IN CYCLES 1-2, EVERY TWO WEEKS IN CYCLES 3-6, AND EVERY FOUR WEEKS IN C
     Route: 040
  7. DARATUMUMAB [Suspect]
     Active Substance: DARATUMUMAB
     Dosage: 16 MILLIGRAM/KILOGRAM, Q2WK - IN CYCLES 1-2, EVERY TWO WEEKS IN CYCLES 3-6, AND EVERY FOUR WEEKS IN
     Route: 040

REACTIONS (6)
  - Toxicity to various agents [Fatal]
  - Neutropenia [Unknown]
  - Infection [Unknown]
  - Thrombocytopenia [Unknown]
  - Minimal residual disease [Unknown]
  - Therapy partial responder [Unknown]
